FAERS Safety Report 19084778 (Version 5)
Quarter: 2022Q1

REPORT INFORMATION
  Report Type: Report from Study
  Country: US (occurrence: US)
  Receive Date: 20210401
  Receipt Date: 20220304
  Transmission Date: 20220423
  Serious: Yes (Other)
  Sender: FDA-Public Use
  Company Number: US-ORGANON-O2103USA003301

PATIENT
  Sex: Female
  Weight: 74.83 kg

DRUGS (2)
  1. IMPLANON [Suspect]
     Active Substance: ETONOGESTREL
     Indication: Contraception
     Dosage: 1 IMPLANT (STRENGTH 68 MG) IN LEFT ARM
     Route: 059
     Dates: start: 20210212
  2. NEXPLANON [Suspect]
     Active Substance: ETONOGESTREL
     Dosage: 1 IMPLANT IN LEFT ARM
     Route: 059
     Dates: end: 20210212

REACTIONS (3)
  - Device dislocation [Not Recovered/Not Resolved]
  - Medical device site odour [Recovering/Resolving]
  - Implant site discharge [Recovering/Resolving]

NARRATIVE: CASE EVENT DATE: 20210101
